FAERS Safety Report 14173497 (Version 1)
Quarter: 2017Q4

REPORT INFORMATION
  Report Type: Spontaneous
  Country: US (occurrence: US)
  Receive Date: 20171109
  Receipt Date: 20171109
  Transmission Date: 20180321
  Serious: Yes (Disabling)
  Sender: FDA-Public Use
  Company Number: None

PATIENT
  Age: 70 Year

DRUGS (8)
  1. NOVOLIN N [Concomitant]
     Active Substance: INSULIN HUMAN
  2. VITAMIN A [Concomitant]
     Active Substance: VITAMIN A
  3. VITAMIN B [Concomitant]
     Active Substance: VITAMIN B
  4. VITAMIN C [Concomitant]
     Active Substance: ASCORBIC ACID
  5. MULTIVITAMIN FOR WOMEN OVER 60 YEARS [Concomitant]
  6. VITAMIN E [Concomitant]
     Active Substance: .ALPHA.-TOCOPHEROL
  7. NITROFURANTOIN MONO MACRO [Suspect]
     Active Substance: NITROFURANTOIN\NITROFURANTOIN MONOHYDRATE
     Indication: URINARY TRACT INFECTION
     Dosage: ?          QUANTITY:1 CAPSULE(S);?
     Route: 048
     Dates: start: 20170615, end: 20171027
  8. NITROFURANTOIN MONO MACRO [Suspect]
     Active Substance: NITROFURANTOIN\NITROFURANTOIN MONOHYDRATE
     Indication: DEHYDRATION
     Dosage: ?          QUANTITY:1 CAPSULE(S);?
     Route: 048
     Dates: start: 20170615, end: 20171027

REACTIONS (6)
  - Vision blurred [None]
  - Blood glucose increased [None]
  - Shock [None]
  - Diplopia [None]
  - Facial pain [None]
  - Photophobia [None]

NARRATIVE: CASE EVENT DATE: 20171103
